FAERS Safety Report 21774083 (Version 1)
Quarter: 2022Q4

REPORT INFORMATION
  Report Type: Spontaneous
  Country: US (occurrence: US)
  Receive Date: 20221223
  Receipt Date: 20221223
  Transmission Date: 20230113
  Serious: Yes (Death, Other)
  Sender: FDA-Public Use
  Company Number: US-GILEAD-2022-0610551

PATIENT
  Age: 65 Year
  Sex: Male

DRUGS (2)
  1. VEKLURY [Suspect]
     Active Substance: REMDESIVIR
     Indication: COVID-19
     Route: 065
  2. TOCILIZUMAB [Suspect]
     Active Substance: TOCILIZUMAB
     Indication: Product used for unknown indication
     Route: 065

REACTIONS (8)
  - Acute respiratory failure [Fatal]
  - Renal failure [Unknown]
  - Skin ulcer [Unknown]
  - Organ failure [Unknown]
  - Pain [Unknown]
  - Stress [Unknown]
  - Anxiety [Unknown]
  - Discomfort [Unknown]

NARRATIVE: CASE EVENT DATE: 20210908
